FAERS Safety Report 6280226-5 (Version None)
Quarter: 2009Q3

REPORT INFORMATION
  Report Type: 
  Country: None (occurrence: None)
  Receive Date: 20090723
  Receipt Date: 20090720
  Transmission Date: 20100115
  Serious: Yes (Life-Threatening, Hospitalization, Other)
  Sender: FDA-Public Use
  Company Number: US-MERCK-0907USA00191

PATIENT
  Sex: Female
  Weight: 82 kg

DRUGS (6)
  1. ZETIA [Suspect]
     Indication: HYPERCHOLESTEROLAEMIA
     Route: 048
  2. JANUMET [Concomitant]
     Route: 048
  3. GLIMEPIRIDE [Concomitant]
     Route: 065
  4. PROTONIX [Concomitant]
     Route: 065
  5. ASPIRIN [Concomitant]
     Route: 065
  6. LOVAZA [Concomitant]
     Route: 065

REACTIONS (2)
  - IRON DEFICIENCY [None]
  - IRON DEFICIENCY ANAEMIA [None]
